FAERS Safety Report 6756892-4 (Version None)
Quarter: 2010Q2

REPORT INFORMATION
  Report Type: 
  Country: None (occurrence: None)
  Receive Date: 20100604
  Receipt Date: 20100521
  Transmission Date: 20101027
  Serious: Yes (Other)
  Sender: FDA-Public Use
  Company Number: GB-BAUSCH-2010BL002906

PATIENT
  Age: 33 Year
  Sex: Female

DRUGS (3)
  1. DEXAMETHASONE [Suspect]
     Indication: DRUG USE FOR UNKNOWN INDICATION
     Dates: start: 20070101
  2. IMMU-G [Suspect]
     Indication: HEART BLOCK CONGENITAL
     Route: 042
     Dates: start: 20070101
  3. HYDROCORTISONE [Concomitant]
     Indication: HEART BLOCK CONGENITAL
     Route: 042
     Dates: start: 20070101

REACTIONS (2)
  - ABORTION INDUCED [None]
  - DRUG EXPOSURE DURING PREGNANCY [None]
